FAERS Safety Report 4531037-X (Version None)
Quarter: 2004Q4

REPORT INFORMATION
  Report Type: 
  Country: None (occurrence: None)
  Receive Date: 20041215
  Receipt Date: 20041129
  Transmission Date: 20050328
  Serious: Yes (Hospitalization)
  Sender: FDA-Public Use
  Company Number: 8007416

PATIENT
  Age: 38 Year
  Sex: Female

DRUGS (15)
  1. KEPPRA [Suspect]
     Indication: DRUG RESISTANCE
     Dosage: 2500 MG /D PO
     Route: 048
     Dates: start: 20021001, end: 20030601
  2. KEPPRA [Suspect]
     Indication: EPILEPSY
     Dosage: 2500 MG /D PO
     Route: 048
     Dates: start: 20021001, end: 20030601
  3. KEPPRA [Suspect]
     Indication: DRUG RESISTANCE
     Dosage: 1750 MG /D PO
     Route: 048
     Dates: start: 20040201, end: 20040501
  4. KEPPRA [Suspect]
     Indication: EPILEPSY
     Dosage: 1750 MG /D PO
     Route: 048
     Dates: start: 20040201, end: 20040501
  5. KEPPRA [Suspect]
     Indication: DRUG RESISTANCE
     Dosage: 750 MG /D PO
     Route: 048
     Dates: start: 20040801
  6. KEPPRA [Suspect]
     Indication: EPILEPSY
     Dosage: 750 MG /D PO
     Route: 048
     Dates: start: 20040801
  7. KEPPRA [Suspect]
     Indication: DRUG RESISTANCE
     Dosage: 1250 MG /D PO
     Route: 048
  8. KEPPRA [Suspect]
     Indication: EPILEPSY
     Dosage: 1250 MG /D PO
     Route: 048
  9. KEPPRA [Suspect]
     Indication: DRUG RESISTANCE
     Dosage: 1250 MG /D PO
     Route: 048
     Dates: start: 20040901, end: 20010901
  10. KEPPRA [Suspect]
     Indication: EPILEPSY
     Dosage: 1250 MG /D PO
     Route: 048
     Dates: start: 20040901, end: 20010901
  11. KEPPRA [Suspect]
     Dosage: 1250 MG /D PO
     Route: 048
     Dates: start: 20040901
  12. LAMOTRIGINE [Concomitant]
  13. VITAMIN B1 AND B6 [Concomitant]
  14. FOLIC ACID [Concomitant]
  15. FERRUM  ORAL      LEK [Concomitant]

REACTIONS (13)
  - CONDITION AGGRAVATED [None]
  - CONVULSION [None]
  - DRUG INEFFECTIVE [None]
  - GRAND MAL CONVULSION [None]
  - HICCUPS [None]
  - IRRITABILITY [None]
  - MIGRAINE [None]
  - MOOD ALTERED [None]
  - NASAL CONGESTION [None]
  - NASAL DRYNESS [None]
  - PHARMACEUTICAL PRODUCT COMPLAINT [None]
  - REACTION TO DRUG EXCIPIENT [None]
  - SNEEZING [None]
